FAERS Safety Report 10136263 (Version 1)
Quarter: 2014Q2

REPORT INFORMATION
  Report Type: Spontaneous
  Country: US (occurrence: US)
  Receive Date: 20140429
  Receipt Date: 20140429
  Transmission Date: 20141212
  Serious: Yes (Other)
  Sender: FDA-Public Use
  Company Number: US-AMGEN-USASP2014029976

PATIENT
  Age: 59 Year
  Sex: Female

DRUGS (6)
  1. NEULASTA [Suspect]
     Indication: NEUTROPENIA
     Dosage: UNK
     Route: 065
  2. RITUXIMAB [Concomitant]
     Dosage: UNK
  3. CYCLOPHOSPHAMIDE [Concomitant]
     Dosage: UNK
  4. DOXORUBICIN [Concomitant]
     Dosage: UNK
  5. VINCRISTINE [Concomitant]
     Dosage: UNK
  6. PREDNISOLONE [Concomitant]
     Dosage: UNK

REACTIONS (4)
  - Neutrophil count decreased [Unknown]
  - Incorrect route of drug administration [Unknown]
  - Discomfort [Unknown]
  - Bone pain [Unknown]
